FAERS Safety Report 5721249-1 (Version None)
Quarter: 2008Q2

REPORT INFORMATION
  Report Type: 
  Country: None (occurrence: None)
  Receive Date: 20080428
  Receipt Date: 20080428
  Transmission Date: 20081010
  Serious: Yes (Hospitalization)
  Sender: FDA-Public Use
  Company Number: None

PATIENT
  Age: 43 Year
  Sex: Female
  Weight: 51.73 kg

DRUGS (1)
  1. AVASTIN [Suspect]
     Indication: COLON CANCER METASTATIC
     Dosage: 205 MG ONCE IV
     Route: 042
     Dates: start: 20080417, end: 20080417

REACTIONS (3)
  - ACUTE PRERENAL FAILURE [None]
  - DYSPNOEA [None]
  - RENAL FAILURE ACUTE [None]
